FAERS Safety Report 15600181 (Version 1)
Quarter: 2018Q4

REPORT INFORMATION
  Report Type: Spontaneous
  Country: CA (occurrence: CA)
  Receive Date: 20181109
  Receipt Date: 20181109
  Transmission Date: 20190205
  Serious: Yes (Death, Hospitalization)
  Sender: FDA-Public Use
  Company Number: CA-TEVA-2018-CA-972931

PATIENT
  Age: 58 Year
  Sex: Male

DRUGS (7)
  1. PHENYLEPHRINE HYDROCHLORIDE. [Concomitant]
     Active Substance: PHENYLEPHRINE HYDROCHLORIDE
     Route: 065
  2. CEFOTAXIME SODIUM [Suspect]
     Active Substance: CEFOTAXIME SODIUM
     Indication: BACTERIAL SEPSIS
     Dosage: 2 GRAM DAILY;
     Route: 042
  3. VASOPRESSIN. [Concomitant]
     Active Substance: VASOPRESSIN
     Route: 065
  4. DOXYCYCLINE. [Suspect]
     Active Substance: DOXYCYCLINE
     Indication: BACTERIAL SEPSIS
     Route: 042
  5. MEROPENEM. [Concomitant]
     Active Substance: MEROPENEM
     Dosage: 500 MILLIGRAM DAILY;
     Route: 042
  6. CEFAZOLIN [Concomitant]
     Active Substance: CEFAZOLIN
     Route: 042
  7. VANCOMYCIN [Concomitant]
     Active Substance: VANCOMYCIN
     Route: 042

REACTIONS (4)
  - Drug ineffective [Fatal]
  - Bacterial sepsis [Fatal]
  - Condition aggravated [Fatal]
  - Multiple organ dysfunction syndrome [Fatal]
